FAERS Safety Report 17533004 (Version 2)
Quarter: 2020Q3

REPORT INFORMATION
  Report Type: Spontaneous
  Country: US (occurrence: US)
  Receive Date: 20200312
  Receipt Date: 20200814
  Transmission Date: 20201102
  Serious: Yes (Other)
  Sender: FDA-Public Use
  Company Number: US-GILEAD-2020-0454503

PATIENT
  Age: 60 Year
  Sex: Male
  Weight: 81.63 kg

DRUGS (3)
  1. VITAMIN D3 [Concomitant]
     Active Substance: CHOLECALCIFEROL
     Indication: VITAMIN D DEFICIENCY
     Dosage: UNK
     Route: 048
     Dates: start: 2017, end: 2018
  2. VIREAD [Suspect]
     Active Substance: TENOFOVIR DISOPROXIL FUMARATE
     Indication: HIV INFECTION
     Dosage: UNK
     Route: 048
     Dates: start: 20030615, end: 20190624
  3. VALACYCLOVIR HCL [Concomitant]
     Active Substance: VALACYCLOVIR HYDROCHLORIDE
     Indication: GENITAL HERPES
     Dosage: UNK
     Dates: start: 1979

REACTIONS (14)
  - Fibula fracture [Recovered/Resolved]
  - Renal failure [Unknown]
  - Osteopenia [Not Recovered/Not Resolved]
  - Anxiety [Unknown]
  - Osteomalacia [Not Recovered/Not Resolved]
  - Acute kidney injury [Unknown]
  - Economic problem [Unknown]
  - Anhedonia [Unknown]
  - Bone density decreased [Unknown]
  - Femur fracture [Recovered/Resolved]
  - Chronic kidney disease [Not Recovered/Not Resolved]
  - Emotional distress [Unknown]
  - Fracture [Unknown]
  - Pain [Unknown]

NARRATIVE: CASE EVENT DATE: 2012
